FAERS Safety Report 7563201-X (Version None)
Quarter: 2011Q2

REPORT INFORMATION
  Report Type: 
  Country: None (occurrence: None)
  Receive Date: 20110622
  Receipt Date: 20110620
  Transmission Date: 20111010
  Serious: Yes (Other)
  Sender: FDA-Public Use
  Company Number: DK-ABBOTT-10P-044-0639661-00

PATIENT
  Sex: Male
  Weight: 95 kg

DRUGS (1)
  1. HUMIRA [Suspect]
     Indication: PSORIASIS
     Route: 058
     Dates: start: 20080815

REACTIONS (3)
  - OSTEONECROSIS OF JAW [None]
  - GRANULOCYTE COUNT DECREASED [None]
  - PERIODONTITIS [None]
